FAERS Safety Report 18750459 (Version 2)
Quarter: 2021Q1

REPORT INFORMATION
  Report Type: Spontaneous
  Country: US (occurrence: US)
  Receive Date: 20210118
  Receipt Date: 20210312
  Transmission Date: 20210419
  Serious: Yes (Other)
  Sender: FDA-Public Use
  Company Number: US-DRREDDYS-USA/USA/21/0131067

PATIENT
  Age: 13 Month
  Sex: Male

DRUGS (2)
  1. CORTICOTROPIN [Suspect]
     Active Substance: CORTICOTROPIN
     Indication: INFANTILE SPASMS
     Dosage: 150 U/M2/DAY (55 U/DAY)
  2. VIGABATRIN. [Suspect]
     Active Substance: VIGABATRIN
     Indication: INFANTILE SPASMS

REACTIONS (4)
  - Somnolence [Unknown]
  - Tardive dyskinesia [Recovered/Resolved]
  - Treatment failure [Unknown]
  - Cerebral disorder [Unknown]
